FAERS Safety Report 7045942-6 (Version None)
Quarter: 2010Q4

REPORT INFORMATION
  Report Type: 
  Country: None (occurrence: None)
  Receive Date: 20101013
  Receipt Date: 20101013
  Transmission Date: 20110411
  Serious: Yes (Other)
  Sender: FDA-Public Use
  Company Number: None

PATIENT
  Age: 75 Year
  Sex: Female
  Weight: 72.5755 kg

DRUGS (1)
  1. SENSORCAINE [Suspect]
     Indication: ANAESTHESIA
     Dosage: 11.2 MG ONCE SPINAL
     Route: 024
     Dates: start: 20100928

REACTIONS (2)
  - DRUG INEFFECTIVE [None]
  - PAIN [None]
